FAERS Safety Report 11009731 (Version 1)
Quarter: 2015Q2

REPORT INFORMATION
  Report Type: Spontaneous
  Country: US (occurrence: US)
  Receive Date: 20150410
  Receipt Date: 20150410
  Transmission Date: 20150821
  Serious: Yes (Hospitalization)
  Sender: FDA-Public Use
  Company Number: US-SA-2015SA044256

PATIENT
  Age: 77 Year
  Sex: Male

DRUGS (15)
  1. ARANESP [Concomitant]
     Active Substance: DARBEPOETIN ALFA
  2. FISH OIL [Concomitant]
     Active Substance: FISH OIL
  3. HYDROXYUREA. [Concomitant]
     Active Substance: HYDROXYUREA
  4. LIPITOR [Concomitant]
     Active Substance: ATORVASTATIN CALCIUM
  5. JAKAFI [Suspect]
     Active Substance: RUXOLITINIB
     Indication: MYELOFIBROSIS
     Route: 048
     Dates: start: 20131221
  6. MICARDIS [Concomitant]
     Active Substance: TELMISARTAN
     Dates: end: 201501
  7. TRICOR [Concomitant]
     Active Substance: FENOFIBRATE
  8. ZETIA [Concomitant]
     Active Substance: EZETIMIBE
  9. ARICEPT [Concomitant]
     Active Substance: DONEPEZIL HYDROCHLORIDE
  10. WARFARIN [Concomitant]
     Active Substance: WARFARIN
  11. DYNASTAT [Concomitant]
     Active Substance: PARECOXIB SODIUM
  12. ALLOPURINOL. [Concomitant]
     Active Substance: ALLOPURINOL
  13. LOVENOX [Suspect]
     Active Substance: ENOXAPARIN SODIUM
     Dosage: DOSE:10 MILLIGRAM(S)/MILLILITRE
     Route: 030
  14. NORVASC [Concomitant]
     Active Substance: AMLODIPINE BESYLATE
  15. COREG [Concomitant]
     Active Substance: CARVEDILOL

REACTIONS (3)
  - Acute kidney injury [Unknown]
  - Anaemia [Recovering/Resolving]
  - Muscle haemorrhage [Recovering/Resolving]

NARRATIVE: CASE EVENT DATE: 2015
